FAERS Safety Report 8016404-4 (Version None)
Quarter: 2011Q4

REPORT INFORMATION
  Report Type: 
  Country: None (occurrence: None)
  Receive Date: 20111230
  Receipt Date: 20111220
  Transmission Date: 20120403
  Serious: Yes (Hospitalization, Congenital Anomaly)
  Sender: FDA-Public Use
  Company Number: DK-ELI_LILLY_AND_COMPANY-DK201112006837

PATIENT
  Sex: Female

DRUGS (1)
  1. FLUOXETINE HCL [Suspect]
     Indication: DEPRESSION
     Dosage: 20 MG, QD
     Route: 064
     Dates: start: 20101012, end: 20110317

REACTIONS (4)
  - INFANTILE COLIC [None]
  - FOETAL EXPOSURE DURING PREGNANCY [None]
  - GASTROINTESTINAL DISORDER CONGENITAL [None]
  - CONSTIPATION [None]
